FAERS Safety Report 7503814-4 (Version None)
Quarter: 2011Q2

REPORT INFORMATION
  Report Type: 
  Country: None (occurrence: None)
  Receive Date: 20110525
  Receipt Date: 20110519
  Transmission Date: 20111010
  Serious: Yes (Other)
  Sender: FDA-Public Use
  Company Number: US-TYCO HEALTHCARE/MALLINCKRODT-T201100814

PATIENT
  Sex: Male
  Weight: 81.633 kg

DRUGS (16)
  1. RANITIDINE [Concomitant]
     Dosage: 300 MG, QD
  2. XANAX [Concomitant]
     Indication: ANXIETY
     Dosage: 0.5 MG, QID
  3. PERCOCET [Concomitant]
     Indication: PAIN
  4. METOCLOPRAMIDE [Concomitant]
     Indication: GASTROINTESTINAL DISORDER
     Dosage: 5 MG, QD
  5. PLAVIX [Concomitant]
     Dosage: 75 MG, QD
  6. LACTULOSE [Concomitant]
  7. FENTANYL-100 [Suspect]
     Indication: BACK PAIN
     Dosage: 1 PATCH EVERY 72 HOURS
     Route: 062
     Dates: start: 20110323
  8. FENTANYL-100 [Concomitant]
     Dosage: 75 UG/HR, EVERY 72 HOURS
     Dates: end: 20110301
  9. CRESTOR [Concomitant]
     Dosage: 40 MG, QD
  10. DOXYCYCLINE [Concomitant]
     Indication: GASTROINTESTINAL INFECTION
     Dosage: UNK
  11. REMERON [Concomitant]
     Indication: SLEEP DISORDER
     Dosage: UNK
  12. XANAX [Concomitant]
     Indication: DEPRESSION
  13. PREVACID [Concomitant]
     Dosage: BID
  14. METOPROLOL TARTRATE [Concomitant]
     Indication: BLOOD PRESSURE INCREASED
     Dosage: 50 MG, QD
  15. LISINOPRIL [Concomitant]
     Dosage: 20 MG, QD
  16. FLUTICASONE PROPIONATE [Concomitant]
     Dosage: UNK

REACTIONS (7)
  - ABDOMINAL DISCOMFORT [None]
  - TREMOR [None]
  - WEIGHT DECREASED [None]
  - INAPPROPRIATE SCHEDULE OF DRUG ADMINISTRATION [None]
  - DECREASED APPETITE [None]
  - DRUG INEFFECTIVE [None]
  - DRUG SCREEN NEGATIVE [None]
